FAERS Safety Report 6958777-7 (Version None)
Quarter: 2010Q3

REPORT INFORMATION
  Report Type: 
  Country: None (occurrence: None)
  Receive Date: 20100831
  Receipt Date: 20100819
  Transmission Date: 20110219
  Serious: Yes (Other)
  Sender: FDA-Public Use
  Company Number: PHHY2010NZ50704

PATIENT
  Sex: Female

DRUGS (3)
  1. GLEEVEC [Suspect]
     Indication: GASTROINTESTINAL STROMAL TUMOUR
     Dosage: 400 MG DAILY
     Route: 048
     Dates: start: 20080913, end: 20100801
  2. GLEEVEC [Suspect]
     Dosage: 800 MG
     Route: 048
     Dates: start: 20100802
  3. DIGOXIN [Concomitant]
     Indication: ATRIAL FIBRILLATION

REACTIONS (11)
  - ABDOMINAL DISCOMFORT [None]
  - ABDOMINAL MASS [None]
  - BACK PAIN [None]
  - DYSURIA [None]
  - FLUSHING [None]
  - GASTROINTESTINAL STROMAL TUMOUR [None]
  - HEART RATE INCREASED [None]
  - LIVER DISORDER [None]
  - MALIGNANT NEOPLASM PROGRESSION [None]
  - PERITONEAL LESION [None]
  - URINARY TRACT INFECTION [None]
